FAERS Safety Report 24978674 (Version 1)
Quarter: 2025Q1

REPORT INFORMATION
  Report Type: Report from Study
  Country: US (occurrence: US)
  Receive Date: 20250218
  Receipt Date: 20250218
  Transmission Date: 20250408
  Serious: No
  Sender: ROCHE
  Company Number: US-ROCHE-10000209664

PATIENT
  Age: 72 Year
  Sex: Male

DRUGS (19)
  1. OCRELIZUMAB [Suspect]
     Active Substance: OCRELIZUMAB
     Indication: Multiple sclerosis
     Route: 040
     Dates: start: 20210730, end: 20210730
  2. OCRELIZUMAB [Suspect]
     Active Substance: OCRELIZUMAB
     Route: 040
     Dates: start: 20210813
  3. OCRELIZUMAB [Suspect]
     Active Substance: OCRELIZUMAB
     Route: 040
     Dates: start: 20220211
  4. OCRELIZUMAB [Suspect]
     Active Substance: OCRELIZUMAB
     Route: 040
     Dates: start: 20220729, end: 20220729
  5. OCRELIZUMAB [Suspect]
     Active Substance: OCRELIZUMAB
     Route: 040
     Dates: start: 20230130, end: 20230130
  6. OCRELIZUMAB [Suspect]
     Active Substance: OCRELIZUMAB
     Route: 040
     Dates: start: 20230717, end: 20230717
  7. OCRELIZUMAB [Suspect]
     Active Substance: OCRELIZUMAB
     Route: 040
     Dates: start: 20240102, end: 20240102
  8. OCRELIZUMAB [Suspect]
     Active Substance: OCRELIZUMAB
     Route: 040
     Dates: start: 20240618, end: 20240618
  9. OCRELIZUMAB [Suspect]
     Active Substance: OCRELIZUMAB
     Route: 040
     Dates: start: 20241223, end: 20241223
  10. GLATIRAMER [Concomitant]
     Active Substance: GLATIRAMER
     Dates: start: 20080908
  11. DIAZEPAM [Concomitant]
     Active Substance: DIAZEPAM
     Dates: start: 20080929
  12. LISINOPRIL [Concomitant]
     Active Substance: LISINOPRIL
     Dates: start: 20080804
  13. METFORMIN [Concomitant]
     Active Substance: METFORMIN HYDROCHLORIDE
     Dates: start: 20080804
  14. METOPROLOL TARTRATE [Concomitant]
     Active Substance: METOPROLOL TARTRATE
     Dates: start: 20090227
  15. OMEPRAZOLE [Concomitant]
     Active Substance: OMEPRAZOLE
     Dates: start: 20180322
  16. PRAVASTATIN [Concomitant]
     Active Substance: PRAVASTATIN
     Dates: start: 20080207
  17. ROPINIROLE [Concomitant]
     Active Substance: ROPINIROLE
     Dates: start: 20131106
  18. SERTRALINE [Concomitant]
     Active Substance: SERTRALINE HYDROCHLORIDE
     Dates: start: 20081210
  19. TOLMETIN [Concomitant]
     Active Substance: TOLMETIN
     Dates: start: 20080804

REACTIONS (1)
  - COVID-19 [Recovering/Resolving]

NARRATIVE: CASE EVENT DATE: 20250208
